FAERS Safety Report 10164733 (Version 1)
Quarter: 2014Q2

REPORT INFORMATION
  Report Type: Spontaneous
  Country: US (occurrence: US)
  Receive Date: 20140510
  Receipt Date: 20140510
  Transmission Date: 20141212
  Serious: No
  Sender: FDA-Public Use
  Company Number: US-BRISTOL-MYERS SQUIBB COMPANY-19519339

PATIENT
  Age: 70 Year
  Sex: Female
  Weight: 108.84 kg

DRUGS (2)
  1. BYETTA PEN DISPOSABLE [Suspect]
     Indication: TYPE 2 DIABETES MELLITUS
  2. METFORMIN [Concomitant]
     Route: 048

REACTIONS (3)
  - Nausea [Recovered/Resolved]
  - Overdose [Unknown]
  - Product quality issue [Unknown]
